FAERS Safety Report 8948187 (Version 1)
Quarter: 2012Q4

REPORT INFORMATION
  Report Type: 
  Country: JP (occurrence: JP)
  Receive Date: 20121204
  Receipt Date: 20121204
  Transmission Date: 20130627
  Serious: Yes (Hospitalization)
  Sender: FDA-Public Use
  Company Number: JP-ELI_LILLY_AND_COMPANY-JP201210009267

PATIENT
  Age: 63 Year
  Sex: Male

DRUGS (2)
  1. ZYPREXA [Suspect]
     Indication: SCHIZOPHRENIA
     Dosage: 5 mg, UNK
     Dates: start: 20120808, end: 20121025
  2. LYRICA [Concomitant]

REACTIONS (1)
  - Hypercapnia [Not Recovered/Not Resolved]
